FAERS Safety Report 23967835 (Version 1)
Quarter: 2024Q2

REPORT INFORMATION
  Report Type: Spontaneous
  Country: US (occurrence: US)
  Receive Date: 20240612
  Receipt Date: 20240612
  Transmission Date: 20240716
  Serious: No
  Sender: FDA-Public Use
  Company Number: US-RIGEL Pharmaceuticals, INC-2024FOS000038

PATIENT
  Sex: Male

DRUGS (3)
  1. TAVALISSE [Suspect]
     Active Substance: FOSTAMATINIB
     Indication: Immune thrombocytopenia
     Dosage: 100 MG, BID
     Route: 048
     Dates: start: 20231014, end: 20231207
  2. TAVALISSE [Suspect]
     Active Substance: FOSTAMATINIB
     Indication: Myelodysplastic syndrome
  3. LOSARTAN [Concomitant]
     Active Substance: LOSARTAN
     Indication: Product used for unknown indication
     Dosage: 100 MG, QD

REACTIONS (2)
  - Platelet count decreased [Unknown]
  - Hypertension [Unknown]

NARRATIVE: CASE EVENT DATE: 20230101
